FAERS Safety Report 22211512 (Version 1)
Quarter: 2023Q2

REPORT INFORMATION
  Report Type: Spontaneous
  Country: US (occurrence: None)
  Receive Date: 20230413
  Receipt Date: 20230413
  Transmission Date: 20230721
  Serious: No
  Sender: FDA-Public Use
  Company Number: None

PATIENT
  Age: 65 Year
  Sex: Female

DRUGS (1)
  1. LENVIMA [Suspect]
     Active Substance: LENVATINIB
     Indication: Salivary gland cancer
     Dosage: FREQUENCY : DAILY;?
     Route: 048
     Dates: start: 20230413

REACTIONS (2)
  - Off label use [None]
  - Metastases to liver [None]

NARRATIVE: CASE EVENT DATE: 20230413
